FAERS Safety Report 21922080 (Version 1)
Quarter: 2023Q1

REPORT INFORMATION
  Report Type: Other
  Country: CH (occurrence: CH)
  Receive Date: 20230128
  Receipt Date: 20230128
  Transmission Date: 20230417
  Serious: Yes (Hospitalization, Other)
  Sender: FDA-Public Use
  Company Number: CH-Bion-011075

PATIENT
  Sex: Male

DRUGS (1)
  1. LOPERAMIDE HYDROCHLORIDE [Suspect]
     Active Substance: LOPERAMIDE HYDROCHLORIDE
     Indication: Diarrhoea

REACTIONS (4)
  - Drug dependence [Unknown]
  - Overdose [Unknown]
  - Drug abuse [Unknown]
  - Drug withdrawal syndrome [Unknown]
